FAERS Safety Report 8162802-8 (Version None)
Quarter: 2012Q1

REPORT INFORMATION
  Report Type: 
  Country: None (occurrence: None)
  Receive Date: 20120224
  Receipt Date: 20120210
  Transmission Date: 20120608
  Serious: Yes (Other)
  Sender: FDA-Public Use
  Company Number: NL-CELGENEUS-114-21880-12021167

PATIENT
  Sex: Male

DRUGS (3)
  1. REVLIMID [Suspect]
     Indication: MULTIPLE MYELOMA
     Dosage: 5 MILLIGRAM
     Route: 048
  2. VELCADE [Concomitant]
     Indication: MULTIPLE MYELOMA
     Route: 065
  3. DEXAMETHASONE [Concomitant]
     Indication: MULTIPLE MYELOMA
     Dosage: 40 MILLIGRAM
     Route: 065

REACTIONS (1)
  - VASCULITIS [None]
